FAERS Safety Report 7706446-8 (Version None)
Quarter: 2011Q3

REPORT INFORMATION
  Report Type: 
  Country: None (occurrence: None)
  Receive Date: 20110818
  Receipt Date: 20110804
  Transmission Date: 20111222
  Serious: Yes (Hospitalization)
  Sender: FDA-Public Use
  Company Number: 2011-323

PATIENT
  Age: 28 Year
  Sex: Male
  Weight: 68 kg

DRUGS (5)
  1. PRIALT [Suspect]
     Dosage: 0.23 UG, ONCE/HOUR, INTRATHECAL
     Route: 037
     Dates: start: 20090917, end: 20100331
  2. PRIALT [Suspect]
     Indication: PAIN
     Dosage: 0.21 UG, ONCE/HOUR, INTRATHECAL
     Route: 037
     Dates: start: 20070705, end: 20090917
  3. PRIALT [Suspect]
     Dosage: 0.25 UG, ONCE/HOUR, INTRATHECAL
     Route: 037
     Dates: start: 20100331, end: 20100503
  4. PRIALT [Suspect]
     Dosage: 0.23 UG, ONCE/HOUR, INTRATHECAL
     Route: 037
     Dates: start: 20100503
  5. BACLOFEN [Suspect]
     Indication: PAIN
     Dosage: 41.7-46 UG, ONCE/HOUR, INTRATHECAL
     Route: 037
     Dates: start: 20090917

REACTIONS (5)
  - NARCISSISTIC PERSONALITY DISORDER [None]
  - PARTNER STRESS [None]
  - FAMILY STRESS [None]
  - SUICIDAL IDEATION [None]
  - ALCOHOL POISONING [None]
